FAERS Safety Report 11589855 (Version 1)
Quarter: 2015Q4

REPORT INFORMATION
  Report Type: Spontaneous
  Country: JP (occurrence: JP)
  Receive Date: 20151002
  Receipt Date: 20151002
  Transmission Date: 20160304
  Serious: Yes (Hospitalization, Other)
  Sender: FDA-Public Use
  Company Number: JP-GLAXOSMITHKLINE-JP2015JPN137803

PATIENT
  Age: 22 Year
  Sex: Female

DRUGS (1)
  1. LAMICTAL [Suspect]
     Active Substance: LAMOTRIGINE
     Indication: PANIC DISORDER
     Route: 048

REACTIONS (11)
  - Oropharyngeal pain [Unknown]
  - Dysphagia [Unknown]
  - Hyperthermia [Unknown]
  - Pharyngeal ulceration [Unknown]
  - Toxic epidermal necrolysis [Unknown]
  - Aphthous ulcer [Unknown]
  - Headache [Unknown]
  - Lymphadenopathy [Unknown]
  - Epiglottis ulcer [Unknown]
  - Coating in mouth [Unknown]
  - Rash [Unknown]
